FAERS Safety Report 4607406-6 (Version None)
Quarter: 2005Q1

REPORT INFORMATION
  Report Type: 
  Country: None (occurrence: None)
  Receive Date: 20050314
  Receipt Date: 20030815
  Transmission Date: 20050727
  Serious: Yes (Life-Threatening, Hospitalization, Disabling)
  Sender: FDA-Public Use
  Company Number: US-ROCHE-344984

PATIENT
  Age: 50 Year
  Sex: Female
  Weight: 65.8 kg

DRUGS (9)
  1. PEGASYS [Suspect]
     Indication: HEPATITIS C
     Route: 058
     Dates: start: 20030131, end: 20030814
  2. REBETOL [Concomitant]
     Indication: HEPATITIS C
     Route: 048
     Dates: start: 20030131, end: 20030814
  3. SYNTHROID [Concomitant]
     Indication: HYPOTHYROIDISM
     Route: 048
  4. PREMPRO [Concomitant]
     Indication: HORMONE REPLACEMENT THERAPY
     Route: 048
  5. OXYCONTIN [Concomitant]
     Indication: PAIN
  6. VITAMIN B COMPLEX CAP [Concomitant]
     Indication: NUTRITIONAL SUPPORT
     Route: 048
  7. VITAMIN E [Concomitant]
     Indication: NUTRITIONAL SUPPORT
     Route: 048
  8. FOLIC ACID [Concomitant]
     Indication: NUTRITIONAL SUPPORT
     Route: 048
  9. MOTRIN [Concomitant]
     Indication: DRUG USE FOR UNKNOWN INDICATION
     Route: 048

REACTIONS (45)
  - ABDOMINAL ABSCESS [None]
  - ABDOMINAL DISTENSION [None]
  - ABDOMINAL PAIN [None]
  - ACUTE RESPIRATORY FAILURE [None]
  - ADHESION [None]
  - ATELECTASIS [None]
  - BALANCE DISORDER [None]
  - BLOOD ALBUMIN DECREASED [None]
  - BLOOD ALKALINE PHOSPHATASE INCREASED [None]
  - BLOOD CHLORIDE DECREASED [None]
  - BLOOD GLUCOSE INCREASED [None]
  - BLOOD POTASSIUM DECREASED [None]
  - BLOOD SODIUM DECREASED [None]
  - BLOOD UREA NITROGEN/CREATININE RATIO INCREASED [None]
  - COLITIS ISCHAEMIC [None]
  - DIARRHOEA [None]
  - DISEASE RECURRENCE [None]
  - FATIGUE [None]
  - HAEMATOCRIT DECREASED [None]
  - HAEMOGLOBIN DECREASED [None]
  - HYPOALBUMINAEMIA [None]
  - HYPOKALAEMIA [None]
  - HYPOMAGNESAEMIA [None]
  - HYPOTENSION [None]
  - HYPOVOLAEMIA [None]
  - ILEUS [None]
  - LEUKOPENIA [None]
  - LIPASE INCREASED [None]
  - METABOLIC ACIDOSIS [None]
  - NAUSEA [None]
  - PANCYTOPENIA [None]
  - PLATELET COUNT DECREASED [None]
  - POST PROCEDURAL COMPLICATION [None]
  - POST PROCEDURAL NAUSEA [None]
  - POST PROCEDURAL VOMITING [None]
  - PREALBUMIN DECREASED [None]
  - RED BLOOD CELL COUNT DECREASED [None]
  - RENAL FAILURE ACUTE [None]
  - SEPTIC SHOCK [None]
  - SKIN INFECTION [None]
  - SMALL INTESTINAL OBSTRUCTION [None]
  - STAPHYLOCOCCAL INFECTION [None]
  - TACHYCARDIA [None]
  - VOMITING [None]
  - WHITE BLOOD CELL COUNT DECREASED [None]
